FAERS Safety Report 5527078-6 (Version None)
Quarter: 2007Q4

REPORT INFORMATION
  Report Type: 
  Country: None (occurrence: None)
  Receive Date: 20071127
  Receipt Date: 20071114
  Transmission Date: 20080405
  Serious: Yes (Hospitalization, Other)
  Sender: FDA-Public Use
  Company Number: FR-GENENTECH-243287

PATIENT
  Sex: Female
  Weight: 48 kg

DRUGS (10)
  1. MABTHERA [Suspect]
     Indication: CASTLEMAN'S DISEASE
     Dosage: 500 MG, 1/WEEK
     Route: 042
     Dates: start: 20050525, end: 20050620
  2. ANTICOAGULANT [Concomitant]
     Indication: UNEVALUABLE EVENT
  3. PLAQUENIL [Concomitant]
     Indication: RHEUMATOID ARTHRITIS
     Dosage: 200 MG, QD
     Route: 048
  4. MOPRAL [Concomitant]
     Indication: PROPHYLAXIS
     Route: 048
  5. DEROXAT [Concomitant]
     Indication: DEPRESSION
  6. PREVISCAN [Concomitant]
     Indication: AORTIC VALVE DISEASE
     Route: 048
  7. SOLU-MEDROL [Concomitant]
     Indication: PREMEDICATION
  8. CORTANCYL [Concomitant]
     Indication: RHEUMATOID ARTHRITIS
     Dosage: 5 MG, QD
     Route: 048
  9. HYDROXYZINE [Concomitant]
     Indication: PREMEDICATION
  10. PARACETAMOL [Concomitant]
     Indication: PREMEDICATION

REACTIONS (3)
  - CHRONIC OBSTRUCTIVE PULMONARY DISEASE [None]
  - CRYPTOGENIC ORGANISING PNEUMONIA [None]
  - LUNG DISORDER [None]
